FAERS Safety Report 8622633-9 (Version None)
Quarter: 2012Q3

REPORT INFORMATION
  Report Type: 
  Country: None (occurrence: None)
  Receive Date: 20120827
  Receipt Date: 20120816
  Transmission Date: 20120928
  Serious: Yes (Other)
  Sender: FDA-Public Use
  Company Number: CA-JNJFOC-20120609580

PATIENT
  Sex: Female
  Weight: 51.2 kg

DRUGS (6)
  1. REMICADE [Suspect]
     Dosage: HAS HAD 20 INFLIXIAMB INFUSIONS
     Route: 042
     Dates: start: 20120816
  2. METHOTREXATE [Suspect]
     Route: 065
  3. FOLIC ACID [Concomitant]
     Route: 065
  4. PANTOPRAZOLE SODIUM [Concomitant]
     Route: 065
  5. REMICADE [Suspect]
     Indication: PSORIATIC ARTHROPATHY
     Dosage: HAS HAD 20 INFLIXIAMB INFUSIONS
     Route: 042
     Dates: start: 20090617
  6. METHOTREXATE [Suspect]
     Indication: PRODUCT USED FOR UNKNOWN INDICATION
     Route: 065
     Dates: start: 20120815

REACTIONS (9)
  - PALLOR [None]
  - MOUTH ULCERATION [None]
  - PAIN [None]
  - ASTHENIA [None]
  - WEIGHT DECREASED [None]
  - FUNGAL INFECTION [None]
  - PSORIASIS [None]
  - NASOPHARYNGITIS [None]
  - DYSPHONIA [None]
